APPROVED DRUG PRODUCT: CLARITHROMYCIN
Active Ingredient: CLARITHROMYCIN
Strength: 500MG
Dosage Form/Route: TABLET, EXTENDED RELEASE;ORAL
Application: A065250 | Product #001
Applicant: ANI PHARMACEUTICALS INC
Approved: Aug 25, 2005 | RLD: No | RS: No | Type: DISCN